FAERS Safety Report 9310837 (Version 2)
Quarter: 2013Q2

REPORT INFORMATION
  Report Type: Spontaneous
  Country: ES (occurrence: ES)
  Receive Date: 20130528
  Receipt Date: 20130531
  Transmission Date: 20140414
  Serious: Yes (Other)
  Sender: FDA-Public Use
  Company Number: ES-AMGEN-ESPSP2013037061

PATIENT
  Age: 70 Year
  Sex: Female

DRUGS (6)
  1. PROLIA [Suspect]
     Indication: OSTEOPOROSIS
  2. ALPRAZOLAM [Concomitant]
     Indication: DEPRESSION
     Dosage: 0.5 MG, HALF TAB AT NIGHT
  3. VITAMIN C                          /00008001/ [Concomitant]
  4. POLI ABE [Concomitant]
  5. LISINOPRIL [Concomitant]
     Indication: HYPERTENSION
     Dosage: 5 MG, QD, 1/4 OF TAB
  6. PASSIFLORA EXTRACT [Concomitant]
     Indication: RESTLESSNESS

REACTIONS (4)
  - Bronchiectasis [Recovering/Resolving]
  - Cough [Recovering/Resolving]
  - Nasopharyngitis [Unknown]
  - Immune system disorder [Unknown]
